FAERS Safety Report 9875067 (Version 1)
Quarter: 2020Q3

REPORT INFORMATION
  Report Type: Report from Study
  Country: ES (occurrence: ES)
  Receive Date: 20140206
  Receipt Date: 20140206
  Transmission Date: 20201104
  Serious: Yes (Hospitalization)
  Sender: FDA-Public Use
  Company Number: PHHY2014ES013258

PATIENT
  Age: 64 Year
  Sex: Male

DRUGS (20)
  1. 5?FLUOROURACIL [Suspect]
     Active Substance: FLUOROURACIL
     Indication: GASTROOESOPHAGEAL CANCER
     Dosage: 719.2 MG, BIW
     Route: 040
     Dates: start: 20131114
  2. 5?FLUOROURACIL [Suspect]
     Active Substance: FLUOROURACIL
     Dosage: 4315.2 MG, UNK
     Route: 042
     Dates: start: 20131114
  3. 5?FLUOROURACIL [Suspect]
     Active Substance: FLUOROURACIL
     Route: 042
     Dates: start: 20130722
  4. ONARTUZUMAB. [Suspect]
     Active Substance: ONARTUZUMAB
     Route: 042
     Dates: start: 20131114
  5. ONARTUZUMAB. [Suspect]
     Active Substance: ONARTUZUMAB
     Dates: start: 20130722
  6. FOLINIC ACID [Suspect]
     Active Substance: LEUCOVORIN
     Indication: GASTROOESOPHAGEAL CANCER
     Dosage: 719.2 MG, BIW
     Route: 042
     Dates: start: 20131114
  7. FOLINIC ACID [Suspect]
     Active Substance: LEUCOVORIN
     Route: 042
     Dates: start: 20130722
  8. DACORTIN [Concomitant]
     Active Substance: PREDNISONE
     Indication: MUSCULOSKELETAL CHEST PAIN
     Dosage: 5 MG, UNK
     Route: 048
     Dates: start: 20140116
  9. OXALIPLATIN. [Suspect]
     Active Substance: OXALIPLATIN
     Dosage: 152.83 MG, BIW
     Route: 042
     Dates: start: 20131114
  10. OXALIPLATIN. [Suspect]
     Active Substance: OXALIPLATIN
     Route: 042
     Dates: start: 20130722
  11. GELOCATIL [Concomitant]
     Indication: MUSCULOSKELETAL CHEST PAIN
  12. IBUPROFEN. [Concomitant]
     Active Substance: IBUPROFEN
     Indication: ABDOMINAL PAIN
     Route: 048
     Dates: start: 201307
  13. FUROSEMIDE. [Concomitant]
     Active Substance: FUROSEMIDE
     Indication: OEDEMA PERIPHERAL
     Dosage: 40 MG, UNK
     Route: 048
     Dates: start: 20131230, end: 20140116
  14. DACORTIN [Concomitant]
     Active Substance: PREDNISONE
     Indication: ABDOMINAL PAIN
     Dosage: 10 MG, UNK
     Route: 048
     Dates: start: 20140104, end: 20140116
  15. OMEPRAZOLE. [Concomitant]
     Active Substance: OMEPRAZOLE
     Dosage: 20 MG, UNK
     Route: 048
     Dates: start: 201307
  16. GELOCATIL [Concomitant]
     Indication: ABDOMINAL PAIN
     Dosage: 1 DF, UNK
     Route: 048
     Dates: start: 201307
  17. BOI?K [ASPARTIC ACID\POTASSIUM ASCORBATE] [Concomitant]
     Active Substance: ASPARTIC ACID\POTASSIUM ASCORBATE
     Indication: OEDEMA PERIPHERAL
     Route: 048
     Dates: start: 20140104
  18. CLEXANE [Concomitant]
     Active Substance: ENOXAPARIN SODIUM
     Indication: JUGULAR VEIN THROMBOSIS
     Route: 058
     Dates: start: 20130821
  19. URBAL [Concomitant]
     Dosage: 50 MG, UNK
     Route: 048
     Dates: start: 20130813
  20. BUSCAPINA [Concomitant]
     Dosage: 10 MG, UNK
     Route: 048
     Dates: start: 20130813

REACTIONS (1)
  - Decreased appetite [Not Recovered/Not Resolved]

NARRATIVE: CASE EVENT DATE: 20131119
